FAERS Safety Report 14511661 (Version 1)
Quarter: 2018Q1

REPORT INFORMATION
  Report Type: Report from Study
  Country: AT (occurrence: AT)
  Receive Date: 20180209
  Receipt Date: 20180209
  Transmission Date: 20180509
  Serious: Yes (Hospitalization)
  Sender: FDA-Public Use
  Company Number: AT-AMGEN-AUTCT2017188449

PATIENT
  Sex: Female

DRUGS (2)
  1. ETELCALCETIDE [Suspect]
     Active Substance: ETELCALCETIDE
     Indication: PRODUCT USED FOR UNKNOWN INDICATION
     Dosage: 5 MG, 3 TIMES/WK
     Route: 042
     Dates: start: 20171206
  2. ETELCALCETIDE [Suspect]
     Active Substance: ETELCALCETIDE
     Dosage: 2.5 MG, 3 TIMES/WK
     Route: 042
     Dates: start: 20171206

REACTIONS (2)
  - Renal surgery [Recovered/Resolved]
  - Gastrointestinal haemorrhage [Not Recovered/Not Resolved]

NARRATIVE: CASE EVENT DATE: 20171218
